FAERS Safety Report 5285842-5 (Version None)
Quarter: 2007Q1

REPORT INFORMATION
  Report Type: 
  Country: None (occurrence: None)
  Receive Date: 20070104
  Receipt Date: 20061101
  Transmission Date: 20070707
  Serious: No
  Sender: FDA-Public Use
  Company Number: BDI-008828

PATIENT
  Age: 30 Year
  Sex: Female
  Weight: 104.55 kg

DRUGS (6)
  1. MULTIHANCE [Suspect]
     Indication: NUCLEAR MAGNETIC RESONANCE IMAGING
     Dosage: 5 ML ONCE IV
     Route: 042
     Dates: start: 20061031, end: 20061031
  2. MULTIHANCE [Suspect]
     Indication: THYROID CANCER
     Dosage: 5 ML ONCE IV
     Route: 042
     Dates: start: 20061031, end: 20061031
  3. SYNTHROID [Concomitant]
  4. ADVAIR DISKUS 100/50 [Concomitant]
  5. ALLEGRA [Concomitant]
  6. NEXIUM [Concomitant]

REACTIONS (3)
  - CHEST DISCOMFORT [None]
  - DYSPNOEA [None]
  - TACHYCARDIA [None]
